FAERS Safety Report 7423473-9 (Version None)
Quarter: 2011Q2

REPORT INFORMATION
  Report Type: 
  Country: None (occurrence: None)
  Receive Date: 20110419
  Receipt Date: 20110414
  Transmission Date: 20111010
  Serious: Yes (Other)
  Sender: FDA-Public Use
  Company Number: MX-ROCHE-771762

PATIENT
  Sex: Female

DRUGS (7)
  1. ARTOSIN [Concomitant]
     Indication: DIABETES MELLITUS
     Route: 048
     Dates: start: 19990101, end: 20101213
  2. BONIVA [Suspect]
     Indication: OSTEOPOROSIS
     Route: 048
     Dates: start: 20071113, end: 20110307
  3. NORFENON [Concomitant]
     Dosage: TDD:QD
     Route: 048
  4. TAFIL [Concomitant]
     Indication: ANXIETY
     Dosage: 1/2
     Route: 048
  5. OMEPRAZOLE [Concomitant]
     Indication: GASTRITIS
     Dosage: AS PER NECESSARY
     Route: 048
  6. BENTYL [Concomitant]
     Indication: GASTRITIS
     Route: 048
  7. AMLODIPINE [Concomitant]
     Indication: HYPERTENSION
     Route: 048
     Dates: start: 19760101

REACTIONS (3)
  - GASTRITIS [None]
  - SKIN PAPILLOMA [None]
  - PARAESTHESIA [None]
